FAERS Safety Report 4660129-X (Version None)
Quarter: 2005Q2

REPORT INFORMATION
  Report Type: 
  Country: None (occurrence: None)
  Receive Date: 20050510
  Receipt Date: 20050422
  Transmission Date: 20051028
  Serious: Yes (Other)
  Sender: FDA-Public Use
  Company Number: 2005BI008387

PATIENT
  Sex: Female

DRUGS (3)
  1. AVONEX [Suspect]
     Indication: MULTIPLE SCLEROSIS
     Dosage: 30 UG; QW; IM
     Route: 030
     Dates: start: 20021103
  2. COPAXONE [Concomitant]
  3. BETASERONE [Concomitant]

REACTIONS (5)
  - ABDOMINAL PAIN UPPER [None]
  - HIV INFECTION [None]
  - INJECTION SITE PAIN [None]
  - LEUKAEMIA RECURRENT [None]
  - T-LYMPHOCYTE COUNT DECREASED [None]
